FAERS Safety Report 6210614-4 (Version None)
Quarter: 2009Q2

REPORT INFORMATION
  Report Type: 
  Country: None (occurrence: None)
  Receive Date: 20090529
  Receipt Date: 20090529
  Transmission Date: 20091009
  Serious: Yes (Other)
  Sender: FDA-Public Use
  Company Number: None

PATIENT
  Age: 67 Year
  Sex: Female
  Weight: 83.9154 kg

DRUGS (1)
  1. TOPROL-XL [Suspect]
     Indication: HEART RATE INCREASED
     Dosage: 1 TABLET DAILY PO
     Route: 048
     Dates: start: 20090407, end: 20090515

REACTIONS (12)
  - ANXIETY [None]
  - ASTHMA [None]
  - BRONCHIAL DISORDER [None]
  - DYSPHONIA [None]
  - DYSPNOEA [None]
  - FATIGUE [None]
  - HEADACHE [None]
  - HYPERHIDROSIS [None]
  - NIGHTMARE [None]
  - OROPHARYNGEAL PAIN [None]
  - PANIC ATTACK [None]
  - RESPIRATORY DISORDER [None]
